FAERS Safety Report 20439666 (Version 2)
Quarter: 2022Q3

REPORT INFORMATION
  Report Type: Report from Study
  Country: IN (occurrence: IN)
  Receive Date: 20220207
  Receipt Date: 20220718
  Transmission Date: 20221027
  Serious: Yes (Hospitalization, Other)
  Sender: FDA-Public Use
  Company Number: IN-BRISTOL-MYERS SQUIBB COMPANY-BMS-2022-000070

PATIENT
  Age: 63 Year
  Sex: Male
  Weight: 50 kg

DRUGS (2)
  1. NIVOLUMAB [Suspect]
     Active Substance: NIVOLUMAB
     Indication: Squamous cell carcinoma of head and neck
     Dosage: 150 MILLIGRAM, Q2WK
     Route: 042
     Dates: start: 20211218
  2. NIVOLUMAB [Suspect]
     Active Substance: NIVOLUMAB
     Dosage: FOURTH DOSE OF 140 MG
     Route: 042

REACTIONS (3)
  - Asthenia [Unknown]
  - Diarrhoea [Unknown]
  - Neck pain [Unknown]
